FAERS Safety Report 23188922 (Version 1)
Quarter: 2023Q4

REPORT INFORMATION
  Report Type: Other
  Country: US (occurrence: None)
  Receive Date: 20231115
  Receipt Date: 20231115
  Transmission Date: 20240109
  Serious: Yes (Hospitalization, Other)
  Sender: FDA-Public Use
  Company Number: US-Invatech-000312

PATIENT
  Age: 63 Year
  Sex: Male

DRUGS (2)
  1. NAPROXEN SODIUM [Suspect]
     Active Substance: NAPROXEN SODIUM
     Indication: Product used for unknown indication
  2. SODIUM CHLORIDE [Concomitant]
     Active Substance: SODIUM CHLORIDE
     Indication: Product used for unknown indication

REACTIONS (6)
  - Suicide attempt [Unknown]
  - Intentional overdose [Unknown]
  - Hyperbilirubinaemia [Recovered/Resolved]
  - Toxicity to various agents [Unknown]
  - Abdominal pain [Recovered/Resolved]
  - Nausea [Unknown]
